FAERS Safety Report 9392130 (Version 1)
Quarter: 2013Q3

REPORT INFORMATION
  Report Type: Spontaneous
  Country: US (occurrence: US)
  Receive Date: 20130709
  Receipt Date: 20130709
  Transmission Date: 20140515
  Serious: Yes (Other)
  Sender: FDA-Public Use
  Company Number: US-RB-055733-13

PATIENT
  Age: 31 Year
  Sex: Female
  Weight: 106 kg

DRUGS (5)
  1. BUPRENORPHINE GENERIC [Suspect]
     Indication: DRUG DEPENDENCE
     Route: 060
     Dates: start: 201302
  2. SUBOXONE FILM [Suspect]
     Indication: DRUG DEPENDENCE
     Dosage: SUBOXONE FILM
     Route: 060
     Dates: start: 201201, end: 201302
  3. TOBACCO [Concomitant]
     Indication: NICOTINE DEPENDENCE
     Dosage: HAS QUIT SMOKING
     Route: 055
  4. PROMETHAZINE [Concomitant]
     Indication: MOTION SICKNESS
     Route: 048
  5. PRENATAL VITAMINS [Concomitant]
     Indication: PREGNANCY
     Dosage: DOSING DETAILS UNKNOWN
     Route: 065

REACTIONS (5)
  - Pre-eclampsia [Not Recovered/Not Resolved]
  - Blood pressure increased [Not Recovered/Not Resolved]
  - Weight increased [Not Recovered/Not Resolved]
  - Proteinuria [Not Recovered/Not Resolved]
  - Exposure during pregnancy [Not Recovered/Not Resolved]
